FAERS Safety Report 4727614-3 (Version None)
Quarter: 2005Q3

REPORT INFORMATION
  Report Type: 
  Country: None (occurrence: None)
  Receive Date: 20050727
  Receipt Date: 20050727
  Transmission Date: 20060218
  Serious: Yes (Hospitalization)
  Sender: FDA-Public Use
  Company Number: None

PATIENT
  Age: 62 Year
  Sex: Male

DRUGS (28)
  1. METOLAZONE [Suspect]
     Indication: CARDIAC FAILURE CONGESTIVE
     Dosage: 5 MG PO MON AND THUR
     Route: 048
     Dates: start: 20050513, end: 20050523
  2. METOLAZONE [Suspect]
     Indication: DIASTOLIC DYSFUNCTION
     Dosage: 5 MG PO MON AND THUR
     Route: 048
     Dates: start: 20050513, end: 20050523
  3. METOLAZONE [Suspect]
     Indication: HYPOVOLAEMIA
     Dosage: 5 MG PO MON AND THUR
     Route: 048
     Dates: start: 20050513, end: 20050523
  4. BUMETANIDE [Suspect]
     Indication: CARDIAC FAILURE CONGESTIVE
     Dosage: 4 MG PO BID
     Route: 048
  5. BUMETANIDE [Suspect]
     Indication: DIASTOLIC DYSFUNCTION
     Dosage: 4 MG PO BID
     Route: 048
  6. BUMETANIDE [Suspect]
     Indication: HYPOVOLAEMIA
     Dosage: 4 MG PO BID
     Route: 048
  7. ATENOLOL [Concomitant]
  8. METOLAZONE [Concomitant]
  9. BUMEX [Concomitant]
  10. PLAVIX [Concomitant]
  11. DOCUSATE [Concomitant]
  12. ENALAPRIL MALEATE [Concomitant]
  13. GEMFIBROZIL [Concomitant]
  14. RANITIDINE [Concomitant]
  15. TERAZOSIN [Concomitant]
  16. VITAMIN E [Concomitant]
  17. ISOSORBIDE DINITRATE [Concomitant]
  18. DOXEPIN CREAM [Concomitant]
  19. HYDROCORTISONE [Concomitant]
  20. LORATADINE [Concomitant]
  21. ROSUVASTATIN [Concomitant]
  22. ADVAIR DISKUS 100/50 [Concomitant]
  23. ALBUTEROL [Concomitant]
  24. GABAPENTIN [Concomitant]
  25. VENLAFAXINE [Concomitant]
  26. CAPSAICIN [Concomitant]
  27. NITROGLYCERIN [Concomitant]
  28. CLINDAMYCIN CREAM [Concomitant]

REACTIONS (2)
  - INAPPROPRIATE SCHEDULE OF DRUG ADMINISTRATION [None]
  - RENAL FAILURE ACUTE [None]
